FAERS Safety Report 8965043 (Version 2)
Quarter: 2013Q1

REPORT INFORMATION
  Report Type: Spontaneous
  Country: AT (occurrence: AT)
  Receive Date: 20121213
  Receipt Date: 20130220
  Transmission Date: 20140127
  Serious: Yes (Other)
  Sender: FDA-Public Use
  Company Number: AT-BAYER-2012-130680

PATIENT
  Age: 46 Year
  Sex: Male
  Weight: 87 kg

DRUGS (5)
  1. GADOVIST [Suspect]
     Indication: CARDIAC IMAGING PROCEDURE
     Dosage: 18 ML, UNK
     Dates: start: 20121122, end: 20121122
  2. GADOVIST [Suspect]
     Indication: MYOCARDIAL INFARCTION
  3. THROMBO ASS [Concomitant]
     Dosage: 100 MG, QD
  4. HYPREN PLUS [Concomitant]
     Dosage: UNK
  5. CRESTOR [Concomitant]
     Dosage: 40 MG, QD

REACTIONS (5)
  - Heart rate decreased [Recovered/Resolved]
  - Blood pressure decreased [Recovered/Resolved]
  - Paraesthesia [Recovered/Resolved]
  - Hyperhidrosis [Recovered/Resolved]
  - Circulatory collapse [Recovered/Resolved]
